FAERS Safety Report 4807810-7 (Version None)
Quarter: 2005Q4

REPORT INFORMATION
  Report Type: 
  Country: None (occurrence: None)
  Receive Date: 20051020
  Receipt Date: 20051007
  Transmission Date: 20060501
  Serious: Yes (Hospitalization)
  Sender: FDA-Public Use
  Company Number: 2005136052

PATIENT
  Age: 55 Year
  Sex: Male

DRUGS (10)
  1. ATORVASTATIN CALCIUM [Suspect]
     Indication: ILL-DEFINED DISORDER
     Dosage: 10 MG (10 MG, 1 IN  1 D)
  2. AMLODIPINE [Suspect]
     Indication: ILL-DEFINED DISORDER
     Dosage: 1 IN 1 D
  3. ISOSORBIDE MONONITRATE [Suspect]
     Indication: ILL-DEFINED DISORDER
     Dosage: 60 MG (60 MG 1 IN 1 D)
  4. ASPIRIN [Suspect]
     Indication: ILL-DEFINED DISORDER
     Dosage: 75 MG, 1 IN 1 D
  5. BENDROFLUMETHIAZIDE (BENDROFLUMETHIAZIDE) [Suspect]
     Indication: ILL-DEFINED DISORDER
     Dosage: 2.5 MG (2.5 MG, 1 IN 1 D)
  6. RAMIPRIL [Suspect]
     Indication: ILL-DEFINED DISORDER
     Dosage: 2.5 MG (2.5MG IN 1 D
  7. PIOGLITAZONE HCL [Concomitant]
  8. METFORMIN HCL [Concomitant]
  9. METHYLDOPA (METHYLDORA) [Concomitant]
  10. HYDRALAZINE HYDROCHLORIDE (HYDRALAZINE HYDROCHLORIDE) [Concomitant]

REACTIONS (10)
  - ATRIAL FIBRILLATION [None]
  - CEREBRAL HAEMATOMA [None]
  - GLUCOSE URINE [None]
  - HAEMORRHAGIC STROKE [None]
  - HEMIANOPIA HOMONYMOUS [None]
  - HYPERTENSION [None]
  - ISCHAEMIC CEREBRAL INFARCTION [None]
  - OBESITY [None]
  - PROTEIN URINE [None]
  - VENTRICULAR HYPERTROPHY [None]
